FAERS Safety Report 6717324-5 (Version None)
Quarter: 2010Q2

REPORT INFORMATION
  Report Type: 
  Country: None (occurrence: None)
  Receive Date: 20100503
  Receipt Date: 20100420
  Transmission Date: 20101027
  Serious: Yes (Death)
  Sender: FDA-Public Use
  Company Number: 2010AC000289

PATIENT
  Sex: Female

DRUGS (1)
  1. DIGOXIN [Suspect]
     Route: 048

REACTIONS (1)
  - MULTIPLE INJURIES [None]
